FAERS Safety Report 18324115 (Version 2)
Quarter: 2020Q4

REPORT INFORMATION
  Report Type: Report from Study
  Country: US (occurrence: US)
  Receive Date: 20200929
  Receipt Date: 20201001
  Transmission Date: 20210113
  Serious: Yes (Hospitalization, Other)
  Sender: FDA-Public Use
  Company Number: US-GLAXOSMITHKLINE-US2020AMR190365

PATIENT
  Sex: Female

DRUGS (1)
  1. BELANTAMAB MAFODOTIN. [Suspect]
     Active Substance: BELANTAMAB MAFODOTIN
     Indication: PLASMA CELL MYELOMA
     Dosage: UNK
     Route: 065
     Dates: start: 20200921

REACTIONS (5)
  - Hypoxia [Unknown]
  - Pulmonary oedema [Unknown]
  - Pyrexia [Unknown]
  - Lung infiltration [Unknown]
  - Infection [Unknown]

NARRATIVE: CASE EVENT DATE: 20200921
